FAERS Safety Report 11133273 (Version 7)
Quarter: 2015Q4

REPORT INFORMATION
  Report Type: Spontaneous
  Country: US (occurrence: US)
  Receive Date: 20150522
  Receipt Date: 20151214
  Transmission Date: 20160304
  Serious: Yes (Hospitalization, Other)
  Sender: FDA-Public Use
  Company Number: US-PFIZER INC-2014344351

PATIENT
  Age: 54 Year
  Sex: Female

DRUGS (2)
  1. BOSULIF [Suspect]
     Active Substance: BOSUTINIB MONOHYDRATE
     Dosage: UNK
  2. BOSULIF [Suspect]
     Active Substance: BOSUTINIB MONOHYDRATE
     Indication: CHRONIC MYELOID LEUKAEMIA
     Dosage: 500 MG, DAILY
     Dates: start: 20130913

REACTIONS (5)
  - Foot fracture [Unknown]
  - Swelling [Unknown]
  - Gastric ulcer haemorrhage [Unknown]
  - Chronic obstructive pulmonary disease [Unknown]
  - Pulmonary oedema [Unknown]
